FAERS Safety Report 6260422-3 (Version None)
Quarter: 2009Q3

REPORT INFORMATION
  Report Type: 
  Country: None (occurrence: None)
  Receive Date: 20090706
  Receipt Date: 20090622
  Transmission Date: 20100115
  Serious: Yes (Death)
  Sender: FDA-Public Use
  Company Number: 1000007121

PATIENT
  Sex: Male

DRUGS (1)
  1. MEMANTINE HCL [Suspect]
     Indication: VASCULAR DEMENTIA
     Dosage: ORAL
     Route: 048
     Dates: start: 20090101

REACTIONS (1)
  - CEREBRAL HAEMORRHAGE [None]
